FAERS Safety Report 14424217 (Version 1)
Quarter: 2018Q1

REPORT INFORMATION
  Report Type: Spontaneous
  Country: US (occurrence: US)
  Receive Date: 20180122
  Receipt Date: 20180122
  Transmission Date: 20180509
  Serious: No
  Sender: FDA-Public Use
  Company Number: None

PATIENT
  Age: 67 Year
  Sex: Male

DRUGS (2)
  1. TOBRAMYCIN. [Suspect]
     Active Substance: TOBRAMYCIN
     Indication: RASH
     Dosage: DOSE - 300MG/5ML
     Route: 055
     Dates: start: 20171213, end: 20171220
  2. TOBRAMYCIN. [Suspect]
     Active Substance: TOBRAMYCIN
     Indication: DYSPNOEA
     Dosage: DOSE - 300MG/5ML
     Route: 055
     Dates: start: 20171213, end: 20171220

REACTIONS (2)
  - Adverse drug reaction [None]
  - Therapy cessation [None]

NARRATIVE: CASE EVENT DATE: 20171220
